FAERS Safety Report 7687092-1 (Version None)
Quarter: 2011Q3

REPORT INFORMATION
  Report Type: 
  Country: None (occurrence: None)
  Receive Date: 20110816
  Receipt Date: 20110803
  Transmission Date: 20111222
  Serious: Yes (Hospitalization, Other)
  Sender: FDA-Public Use
  Company Number: JP-PFIZER INC-2010140796

PATIENT
  Age: 69 Year
  Sex: Female
  Weight: 43 kg

DRUGS (18)
  1. FLUOROURACIL [Suspect]
     Dosage: 2400 MG/M2, D1-2
     Route: 041
     Dates: start: 20100811, end: 20101215
  2. SELBEX [Concomitant]
     Indication: DUODENAL ULCER
     Dosage: 50 MG, 3X/DAY
     Route: 048
  3. OXYCONTIN [Concomitant]
     Indication: BACK PAIN
     Dosage: 10 MG, 2X/DAY
     Route: 048
  4. KETOPROFEN [Concomitant]
     Indication: BACK PAIN
     Dosage: UNK
     Route: 061
  5. PYDOXAL [Concomitant]
     Indication: NEUROPATHY PERIPHERAL
     Dosage: 10 MG, 3X/DAY
     Route: 048
  6. HACHIAZULE [Concomitant]
     Indication: STOMATITIS
     Dosage: UNK
  7. LOXOPROFEN [Concomitant]
     Dosage: 60 MG, UNK
     Route: 048
     Dates: start: 20101023
  8. LEUCOVORIN CALCIUM [Suspect]
     Indication: COLON CANCER
     Dosage: 200 MG/M2, UNK
     Route: 041
     Dates: start: 20100811, end: 20101215
  9. MAGNESIUM OXIDE [Concomitant]
     Indication: CONSTIPATION
     Dosage: 1 G, UNK
     Route: 048
  10. DAI-KENCHU-TO [Concomitant]
     Indication: CONSTIPATION
     Dosage: 2.5 G, 3X/DAY
     Route: 048
  11. DICLOFENAC SODIUM [Concomitant]
     Indication: BACK PAIN
     Dosage: 75 MG, UNK
     Route: 048
  12. CAMPTOSAR [Suspect]
     Indication: COLON CANCER
     Dosage: 180 MG/M2, UNK
     Route: 041
     Dates: start: 20100811, end: 20101215
  13. AVASTIN [Suspect]
     Indication: COLON CANCER
     Dosage: 5 MG/KG, UNK
     Route: 041
     Dates: start: 20100811, end: 20101215
  14. ALOXI [Concomitant]
     Indication: PREMEDICATION
     Dosage: 0.75 MG, UNK
     Route: 041
     Dates: start: 20100811, end: 20101215
  15. LANSOPRAZOLE [Concomitant]
     Indication: DUODENAL ULCER
     Dosage: 30 MG, UNK
     Route: 048
  16. FLUOROURACIL [Suspect]
     Indication: COLON CANCER
     Dosage: 400 MG/M2
     Route: 040
     Dates: start: 20100811, end: 20101215
  17. DEXAMETHASONE SODIUM PHOSPHATE [Concomitant]
     Indication: PREMEDICATION
     Dosage: 13.2 MG, UNK
     Route: 041
     Dates: start: 20100811, end: 20101215
  18. GABAPENTIN [Concomitant]
     Indication: BACK PAIN
     Dosage: 200 MG, UNK
     Route: 048

REACTIONS (5)
  - URINARY TRACT INFECTION [None]
  - DIARRHOEA [None]
  - SEPSIS [None]
  - HAEMOGLOBIN DECREASED [None]
  - INTESTINAL PERFORATION [None]
